FAERS Safety Report 5441315-8 (Version None)
Quarter: 2007Q3

REPORT INFORMATION
  Report Type: 
  Country: None (occurrence: None)
  Receive Date: 20070903
  Receipt Date: 20070827
  Transmission Date: 20080115
  Serious: Yes (Other)
  Sender: FDA-Public Use
  Company Number: PHBS2007JP12022

PATIENT
  Age: 75 Year
  Sex: Female

DRUGS (9)
  1. PARLODEL [Suspect]
     Indication: PARKINSON'S DISEASE
     Dosage: 7.5 MG, TID
     Route: 048
     Dates: start: 20030601
  2. PARLODEL [Suspect]
     Dosage: 15 MG, TID
     Route: 048
  3. MADOPAR [Concomitant]
     Indication: PARKINSON'S DISEASE
     Dosage: 3 DF, UNK
     Route: 048
  4. GASMOTIN [Concomitant]
     Indication: ABDOMINAL DISCOMFORT
     Dosage: 15 MG/DAY
     Route: 048
     Dates: start: 20060306
  5. SYMMETREL [Concomitant]
     Indication: PARKINSON'S DISEASE
     Dosage: 100 MG, UNK
     Route: 048
  6. LOXONIN [Concomitant]
     Indication: SPINAL OSTEOARTHRITIS
     Dosage: 1 DF, UNK
     Route: 048
  7. MUCOSTA [Concomitant]
     Indication: SPINAL OSTEOARTHRITIS
     Dosage: 1 DF, UNK
     Route: 048
  8. MAGNESIUM OXIDE [Concomitant]
     Indication: CONSTIPATION
     Dosage: 1.5 G, UNK
     Route: 048
     Dates: start: 20060626
  9. PURSENNID [Concomitant]
     Indication: CONSTIPATION
     Dosage: 12 MG, UNK
     Route: 048
     Dates: start: 20061002

REACTIONS (4)
  - ACTIVITIES OF DAILY LIVING IMPAIRED [None]
  - ECHOCARDIOGRAM ABNORMAL [None]
  - LEFT VENTRICULAR DYSFUNCTION [None]
  - MITRAL VALVE INCOMPETENCE [None]
